FAERS Safety Report 18548852 (Version 2)
Quarter: 2020Q4

REPORT INFORMATION
  Report Type: Report from Study
  Country: US (occurrence: US)
  Receive Date: 20201126
  Receipt Date: 20201214
  Transmission Date: 20210114
  Serious: Yes (Hospitalization, Disabling, Other)
  Sender: FDA-Public Use
  Company Number: US-EMD SERONO-9045300

PATIENT
  Age: 66 Year
  Sex: Female

DRUGS (3)
  1. REBIF [Suspect]
     Active Substance: INTERFERON BETA-1A
     Route: 058
     Dates: start: 2012
  2. REBIF [Suspect]
     Active Substance: INTERFERON BETA-1A
     Indication: MULTIPLE SCLEROSIS
     Route: 058
     Dates: start: 2011
  3. REBIF [Suspect]
     Active Substance: INTERFERON BETA-1A
     Route: 058
     Dates: start: 2014

REACTIONS (4)
  - Dysstasia [Not Recovered/Not Resolved]
  - Knee arthroplasty [Recovering/Resolving]
  - Gait disturbance [Recovering/Resolving]
  - Extremity necrosis [Recovering/Resolving]

NARRATIVE: CASE EVENT DATE: 2016
